FAERS Safety Report 7325647-4 (Version None)
Quarter: 2011Q1

REPORT INFORMATION
  Report Type: 
  Country: None (occurrence: None)
  Receive Date: 20110302
  Receipt Date: 20110224
  Transmission Date: 20110831
  Serious: Yes (Life-Threatening, Hospitalization)
  Sender: FDA-Public Use
  Company Number: JP-PFIZER INC-2011002424

PATIENT
  Age: 72 Year
  Sex: Male

DRUGS (2)
  1. DECADRON [Suspect]
     Dosage: 1 MG, DAILY
     Route: 048
     Dates: start: 20101126, end: 20110102
  2. ESTRACYT [Suspect]
     Indication: PROSTATE CANCER
     Dosage: 628 MG, DAILY
     Route: 048
     Dates: start: 20101126, end: 20110102

REACTIONS (1)
  - CEREBRAL INFARCTION [None]
